FAERS Safety Report 24233577 (Version 1)
Quarter: 2024Q3

REPORT INFORMATION
  Report Type: Spontaneous
  Country: FR (occurrence: None)
  Receive Date: 20240821
  Receipt Date: 20240821
  Transmission Date: 20241016
  Serious: Yes (Other)
  Sender: ASTRAZENECA
  Company Number: 2024A184165

PATIENT
  Age: 28 Year
  Sex: Female
  Weight: 57 kg

DRUGS (1)
  1. EVUSHELD [Suspect]
     Active Substance: CILGAVIMAB\TIXAGEVIMAB
     Indication: COVID-19 prophylaxis
     Dosage: 150 MG + 150 MG300.0MG ONCE/SINGLE ADMINISTRATION
     Route: 030
     Dates: start: 20220127, end: 20220127

REACTIONS (1)
  - Ovarian cyst ruptured [Not Recovered/Not Resolved]

NARRATIVE: CASE EVENT DATE: 20220209
